FAERS Safety Report 8889287 (Version 1)
Quarter: 2012Q4

REPORT INFORMATION
  Report Type: 
  Country: BR (occurrence: BR)
  Receive Date: 20121106
  Receipt Date: 20121106
  Transmission Date: 20130627
  Serious: Yes (Other)
  Sender: FDA-Public Use
  Company Number: BR-PFIZER INC-2012267898

PATIENT
  Age: 70 Year
  Sex: Female

DRUGS (5)
  1. ATENOLOL [Suspect]
     Indication: HYPERTENSION
     Dosage: 25 mg,daily
     Route: 048
     Dates: start: 2012, end: 201209
  2. ATACAND [Suspect]
     Indication: HYPERTENSION
     Dosage: 16 mg, daily
     Route: 048
     Dates: start: 2010, end: 201209
  3. CITALOPRAM [Concomitant]
     Indication: PANIC DISORDER
     Dosage: UNK
  4. ALPRAZOLAM [Concomitant]
     Indication: PANIC DISORDER
     Dosage: UNK
  5. VITAMIN B6 [Concomitant]
     Indication: PANIC DISORDER NOS

REACTIONS (10)
  - Pneumonia [Recovered/Resolved]
  - Rib fracture [Recovered/Resolved]
  - Nephrolithiasis [Not Recovered/Not Resolved]
  - Drug ineffective [Recovered/Resolved]
  - Back pain [Not Recovered/Not Resolved]
  - Abdominal pain [Recovered/Resolved]
  - Hypertension [Recovered/Resolved]
  - Vomiting [Recovered/Resolved]
  - Diarrhoea [Recovered/Resolved]
  - Bronchitis [Not Recovered/Not Resolved]
